FAERS Safety Report 4480703-3 (Version None)
Quarter: 2004Q4

REPORT INFORMATION
  Report Type: 
  Country: None (occurrence: None)
  Receive Date: 20041019
  Receipt Date: 20041001
  Transmission Date: 20050328
  Serious: Yes (Death)
  Sender: FDA-Public Use
  Company Number: DSA_70469_2004

PATIENT
  Age: 36 Year

DRUGS (3)
  1. MORPHINE [Suspect]
     Dosage: DF IV
     Route: 042
  2. HEROIN [Suspect]
     Dosage: DF IH
     Route: 055
  3. ETHANOL [Suspect]
     Dosage: DF PO
     Route: 048

REACTIONS (3)
  - ALCOHOL USE [None]
  - CARDIO-RESPIRATORY ARREST [None]
  - INTENTIONAL MISUSE [None]
